FAERS Safety Report 5585817-2 (Version None)
Quarter: 2007Q4

REPORT INFORMATION
  Report Type: 
  Country: None (occurrence: None)
  Receive Date: 20071205
  Receipt Date: 20061218
  Transmission Date: 20080405
  Serious: Yes (Other)
  Sender: FDA-Public Use
  Company Number: HQWYE564119DEC06

PATIENT
  Sex: Female
  Weight: 79.45 kg

DRUGS (8)
  1. EFFEXOR XR [Suspect]
     Indication: DEPRESSION
     Dosage: 75 MG 2X PER 1 DAY, ORAL ; 75 MG 2X PER 1 DAY, ORAL ; 150 MG 1X PER 1 DAY, ORAL
     Route: 048
  2. ACETYLSALICYLIC ACID SRT [Concomitant]
  3. SOTALOL HCL [Concomitant]
  4. SLOW-MAG (MAGNESIUM CHLORIDE ANHYDROUS) [Concomitant]
  5. COUMADIN [Concomitant]
  6. ADVAIR DISKUS 100/50 [Concomitant]
  7. XANAX [Concomitant]
  8. ATACAND [Concomitant]

REACTIONS (1)
  - SUICIDAL IDEATION [None]
